FAERS Safety Report 24432390 (Version 3)
Quarter: 2025Q1

REPORT INFORMATION
  Report Type: Spontaneous
  Country: US (occurrence: US)
  Receive Date: 20241014
  Receipt Date: 20250214
  Transmission Date: 20250409
  Serious: Yes (Hospitalization)
  Sender: IPSEN BIOPHARMACEUTICALS, INC.
  Company Number: US-IPSEN Group, Research and Development-2024-20276

PATIENT
  Age: 17 Month

DRUGS (2)
  1. BYLVAY [Suspect]
     Active Substance: ODEVIXIBAT
     Indication: Progressive familial intrahepatic cholestasis
     Route: 065
  2. BYLVAY [Suspect]
     Active Substance: ODEVIXIBAT
     Dosage: SPLIT INTO BID DOSING
     Route: 065

REACTIONS (3)
  - Alanine aminotransferase increased [Unknown]
  - Adenoviral upper respiratory infection [Unknown]
  - Drug ineffective [Unknown]
